FAERS Safety Report 9444247 (Version 1)
Quarter: 2013Q3

REPORT INFORMATION
  Report Type: Report from Study
  Country: BR (occurrence: BR)
  Receive Date: 20130807
  Receipt Date: 20130807
  Transmission Date: 20140515
  Serious: Yes (Hospitalization, Other)
  Sender: FDA-Public Use
  Company Number: PHHY2013BR083851

PATIENT
  Age: 40 Year
  Sex: Male

DRUGS (21)
  1. MYFORTIC [Suspect]
     Indication: RENAL TRANSPLANT
     Dosage: 3 DF, 2 + 1 TABLET
     Dates: start: 20121217
  2. MYFORTIC [Suspect]
     Dosage: 3 DF, 2 + 1 TABLET
     Dates: start: 20130122
  3. MYFORTIC [Suspect]
     Dosage: 3 DF,  2 + 1 TABLET
     Dates: start: 20130226
  4. MYFORTIC [Suspect]
     Dosage: 2 DF, 1 + 1 TABLET
     Dates: start: 20130409
  5. MYFORTIC [Suspect]
     Dosage: 2 DF, 1 + 1 TABLET
     Dates: start: 20130430
  6. MYFORTIC [Suspect]
     Dosage: 3 DF, 2 + 1 TABLET
     Dates: start: 20130528
  7. MYFORTIC [Suspect]
     Dosage: 3 DF, 2 + 1 TABLET
     Dates: start: 20130617
  8. TACROLIMUS [Suspect]
     Indication: IMMUNOSUPPRESSION
     Dosage: 12 MG, 6 + 6 MG
     Dates: start: 20121217
  9. TACROLIMUS [Suspect]
     Dosage: 12 MG, 6 + 6 MG
     Dates: start: 20130122
  10. TACROLIMUS [Suspect]
     Dosage: 3 MG, 2 + 1 MG
     Dates: start: 20130226
  11. TACROLIMUS [Suspect]
     Dosage: 4 MG, 2 + 2 MG
     Dates: start: 20130409
  12. TACROLIMUS [Suspect]
     Dosage: 4 MG, 2 + 2 MG
     Dates: start: 20130430
  13. TACROLIMUS [Suspect]
     Dosage: 4 MG, 2 + 2 MG
     Dates: start: 20130528
  14. TACROLIMUS [Suspect]
     Dosage: 6 MG, 3 + 3 MG
     Dates: start: 20130617
  15. PREDNISONE [Suspect]
     Indication: IMMUNOSUPPRESSION
     Dosage: 30 MG, UNK
     Dates: start: 20121217
  16. PREDNISONE [Suspect]
     Dosage: 30 MG, UNK
     Dates: start: 20130122
  17. PREDNISONE [Suspect]
     Dosage: 5 MG, UNK
     Dates: start: 20130226
  18. PREDNISONE [Suspect]
     Dosage: 5 MG, UNK
     Dates: start: 20130409
  19. PREDNISONE [Suspect]
     Dosage: 5 MG, UNK
     Dates: start: 20130430
  20. PREDNISONE [Suspect]
     Dosage: 5 MG, UNK
     Dates: start: 20130528
  21. PREDNISONE [Suspect]
     Dosage: 5 MG, UNK
     Dates: start: 20130617

REACTIONS (11)
  - Gastroduodenitis [Unknown]
  - Abdominal pain upper [Unknown]
  - Glomerulonephritis [Unknown]
  - Immunosuppressant drug level increased [Unknown]
  - Renal impairment [Unknown]
  - Oedema peripheral [Unknown]
  - Cytomegalovirus test positive [Unknown]
  - Urinary tract infection [Unknown]
  - Klebsiella infection [Unknown]
  - Hyperglycaemia [Unknown]
  - Kidney transplant rejection [Unknown]
